FAERS Safety Report 18938071 (Version 2)
Quarter: 2021Q2

REPORT INFORMATION
  Report Type: Spontaneous
  Country: US (occurrence: US)
  Receive Date: 20210225
  Receipt Date: 20210413
  Transmission Date: 20210717
  Serious: No
  Sender: FDA-Public Use
  Company Number: US-ASTRAZENECA-2021A020806

PATIENT
  Age: 736 Month
  Sex: Female
  Weight: 73 kg

DRUGS (3)
  1. DEXAMETHASONE. [Concomitant]
     Active Substance: DEXAMETHASONE
     Indication: COVID-19
     Route: 048
     Dates: start: 20210120
  2. MOMETHASONE FUROATE [Concomitant]
     Indication: MULTIPLE ALLERGIES
     Route: 055
  3. PULMICORT FLEXHALER [Suspect]
     Active Substance: BUDESONIDE
     Indication: DYSPNOEA
     Route: 055
     Dates: start: 20210121

REACTIONS (4)
  - Cough [Not Recovered/Not Resolved]
  - Device issue [Unknown]
  - Wrong technique in device usage process [Unknown]
  - SARS-CoV-2 test positive [Unknown]

NARRATIVE: CASE EVENT DATE: 202101
